FAERS Safety Report 9160380 (Version 1)
Quarter: 2013Q1

REPORT INFORMATION
  Report Type: Spontaneous
  Country: US (occurrence: US)
  Receive Date: 20130313
  Receipt Date: 20130313
  Transmission Date: 20140127
  Serious: Yes (Hospitalization)
  Sender: FDA-Public Use
  Company Number: US-ASTRAZENECA-2013SE15635

PATIENT
  Age: 47 Year
  Sex: Male

DRUGS (5)
  1. SEROQUEL XR [Suspect]
     Indication: BIPOLAR I DISORDER
     Route: 048
  2. VISTARIL [Concomitant]
  3. LAMICTAL [Concomitant]
  4. ZOLOFT [Concomitant]
  5. DEPAKOTE [Concomitant]

REACTIONS (1)
  - Blood glucose increased [Recovering/Resolving]
